FAERS Safety Report 14239085 (Version 3)
Quarter: 2018Q2

REPORT INFORMATION
  Report Type: Spontaneous
  Country: IT (occurrence: IT)
  Receive Date: 20171130
  Receipt Date: 20180518
  Transmission Date: 20180711
  Serious: Yes (Hospitalization)
  Sender: FDA-Public Use
  Company Number: IT-ROCHE-2028605

PATIENT
  Age: 60 Year
  Sex: Female
  Weight: 48 kg

DRUGS (3)
  1. CISPLATIN TEVA [Suspect]
     Active Substance: CISPLATIN
     Indication: CERVIX CARCINOMA
     Dosage: 1 MG/ML 1 X 100 ML GLASS VIAL?DATE OF MOST RECENT DOSE PRIOR TO EVENT: 15/MAY/2017.
     Route: 042
     Dates: start: 20170131
  2. AVASTIN [Suspect]
     Active Substance: BEVACIZUMAB
     Indication: CERVIX CARCINOMA
     Dosage: 1 X 400 MG VIAL?DATE OF MOST RECENT DOSE PRIOR TO EVENT: 15/MAY/2017.
     Route: 042
     Dates: start: 20170131
  3. PACLITAXEL TEVA [Suspect]
     Active Substance: PACLITAXEL
     Indication: CERVIX CARCINOMA
     Dosage: 6 MG/ML 16.7 ML VIAL?DATE OF MOST RECENT DOSE PRIOR TO EVENT: 15/MAY/2017.
     Route: 042
     Dates: start: 20170131

REACTIONS (2)
  - Peritonitis [Unknown]
  - Large intestine perforation [Unknown]

NARRATIVE: CASE EVENT DATE: 20170531
